FAERS Safety Report 9970771 (Version 2)
Quarter: 2014Q1

REPORT INFORMATION
  Report Type: Report from Study
  Country: PR (occurrence: PR)
  Receive Date: 20140306
  Receipt Date: 20140306
  Transmission Date: 20141002
  Serious: No
  Sender: FDA-Public Use
  Company Number: PR-ABBVIE-12P-131-0918427-00

PATIENT
  Age: 30 Year
  Sex: Female
  Weight: 76.27 kg

DRUGS (2)
  1. HUMIRA [Suspect]
     Indication: PSORIASIS
     Route: 058
     Dates: start: 201012, end: 201203
  2. DEMA-SMOOTHE [Concomitant]
     Route: 061

REACTIONS (2)
  - Drug ineffective [Recovered/Resolved]
  - Psoriasis [Recovered/Resolved]
